FAERS Safety Report 6232941-7 (Version None)
Quarter: 2009Q2

REPORT INFORMATION
  Report Type: 
  Country: None (occurrence: None)
  Receive Date: 20090612
  Receipt Date: 20090612
  Transmission Date: 20091009
  Serious: Yes (Disabling)
  Sender: FDA-Public Use
  Company Number: None

PATIENT
  Sex: Female
  Weight: 46.2669 kg

DRUGS (6)
  1. FLUCONAZOLE [Suspect]
     Indication: BACTERIAL INFECTION
  2. FLUCONAZOLE [Suspect]
     Indication: FUNGAL INFECTION
  3. VITAMIN D [Concomitant]
  4. NYSTATIN [Concomitant]
  5. CLONAZEPAM [Concomitant]
  6. NO TO LOW CARB (DIET) [Suspect]

REACTIONS (2)
  - DYSTONIA [None]
  - NEUROLOGICAL SYMPTOM [None]
